FAERS Safety Report 9014204 (Version 1)
Quarter: 2013Q1

REPORT INFORMATION
  Report Type: Spontaneous
  Country: IT (occurrence: IT)
  Receive Date: 20130115
  Receipt Date: 20130115
  Transmission Date: 20140127
  Serious: Yes (Other)
  Sender: FDA-Public Use
  Company Number: IT-TEVA-380061ISR

PATIENT
  Age: 75 Year
  Sex: Male

DRUGS (6)
  1. FLUOROURACILE [Suspect]
     Indication: COLON CANCER
     Dosage: 1500 MILLIGRAM DAILY;
     Route: 042
     Dates: start: 20120726, end: 20121120
  2. AVASTIN [Suspect]
     Indication: COLON CANCER
     Dosage: 285 MILLIGRAM DAILY;
     Route: 042
     Dates: start: 20120726, end: 20121120
  3. ELOXATIN [Suspect]
     Indication: COLON CANCER
     Dosage: 100 MILLIGRAM DAILY;
     Route: 042
     Dates: start: 20120726, end: 20121120
  4. PREFOLIC [Concomitant]
  5. NAVOBAN [Concomitant]
     Dosage: 2MG/2ML
  6. TRIMETON [Concomitant]

REACTIONS (1)
  - Hypertension [Not Recovered/Not Resolved]
